FAERS Safety Report 26082421 (Version 1)
Quarter: 2025Q4

REPORT INFORMATION
  Report Type: Report from Study
  Country: CA (occurrence: CA)
  Receive Date: 20251124
  Receipt Date: 20251124
  Transmission Date: 20260117
  Serious: Yes (Hospitalization)
  Sender: SAMSUNG BIOEPIS
  Company Number: CA-SAMSUNG BIOEPIS-SB-2025-38728

PATIENT
  Age: 38 Year
  Sex: Male

DRUGS (7)
  1. HADLIMA [Suspect]
     Active Substance: ADALIMUMAB-BWWD
     Indication: Uveitis
     Dosage: 40MG/0.4ML;
     Route: 058
     Dates: start: 20240410
  2. HADLIMA [Suspect]
     Active Substance: ADALIMUMAB-BWWD
     Dosage: 40MG/0.4ML;
     Route: 058
     Dates: start: 20240410
  3. AZATHIOPRINE [Concomitant]
     Active Substance: AZATHIOPRINE
     Indication: Product used for unknown indication
  4. FOLIC ACID [Concomitant]
     Active Substance: FOLIC ACID
     Indication: Product used for unknown indication
  5. LEUCOVORIN [Concomitant]
     Active Substance: LEUCOVORIN\LEUCOVORIN CALCIUM
     Indication: Product used for unknown indication
  6. METHOTREXATE [Concomitant]
     Active Substance: METHOTREXATE
     Indication: Product used for unknown indication
  7. VENTOLIN [Concomitant]
     Active Substance: ALBUTEROL SULFATE
     Indication: Product used for unknown indication
     Dosage: AS REQUIRED(PRN);

REACTIONS (11)
  - Haemoptysis [Unknown]
  - Pneumonia [Unknown]
  - Immunodeficiency [Unknown]
  - Diarrhoea [Unknown]
  - Rash [Unknown]
  - Hyperhidrosis [Unknown]
  - Chills [Unknown]
  - Dyspnoea [Unknown]
  - Chest discomfort [Unknown]
  - Exposure to communicable disease [Unknown]
  - Product use issue [Unknown]

NARRATIVE: CASE EVENT DATE: 20251116
